FAERS Safety Report 8475803 (Version 4)
Quarter: 2013Q4

REPORT INFORMATION
  Report Type: Spontaneous
  Country: DE (occurrence: None)
  Receive Date: 20120316
  Receipt Date: 20131216
  Transmission Date: 20140711
  Serious: Yes (Death, Other)
  Sender: FDA-Public Use
  Company Number: DE-022521

PATIENT
  Age: 62 Year
  Sex: Female
  Weight: 76 kg

DRUGS (5)
  1. CHLORAMBUCIL [Suspect]
     Indication: CHRONIC LYMPHOCYTIC LEUKAEMIA
     Dosage: (DAYS 1-7 EVERY 28 DAYS)
     Route: 048
     Dates: start: 20110405
  2. OFATUMUMAB [Suspect]
     Indication: CHRONIC LYMPHOCYTIC LEUKAEMIA
     Route: 042
     Dates: start: 20110405
  3. DOXEPIN [Concomitant]
  4. L-THYROXIN (THYROID HORMONES) [Concomitant]
  5. SIMVASTATIN [Concomitant]

REACTIONS (8)
  - Oliguria [None]
  - Cor pulmonale [None]
  - Nausea [None]
  - Vomiting [None]
  - Right ventricular failure [None]
  - Chronic obstructive pulmonary disease [None]
  - Gastrointestinal infection [None]
  - Fluid intake reduced [None]
